FAERS Safety Report 6973713-5 (Version None)
Quarter: 2010Q3

REPORT INFORMATION
  Report Type: 
  Country: None (occurrence: None)
  Receive Date: 20100907
  Receipt Date: 20100830
  Transmission Date: 20110219
  Serious: Yes (Death, Hospitalization)
  Sender: FDA-Public Use
  Company Number: TW-JNJFOC-20100705655

PATIENT

DRUGS (1)
  1. DACOGEN [Suspect]
     Indication: MYELODYSPLASTIC SYNDROME
     Dosage: 35 MG, 1 IN 1 DAY, INTRAVENOUS
     Route: 042
     Dates: start: 20100628, end: 20100702

REACTIONS (18)
  - ANTI-PLATELET ANTIBODY POSITIVE [None]
  - BONE MARROW FAILURE [None]
  - CONDITION AGGRAVATED [None]
  - DIZZINESS [None]
  - DYSPHAGIA [None]
  - DYSPNOEA EXERTIONAL [None]
  - ECCHYMOSIS [None]
  - FEBRILE NEUTROPENIA [None]
  - MALAISE [None]
  - MULTI-ORGAN FAILURE [None]
  - MYELODYSPLASTIC SYNDROME [None]
  - NO THERAPEUTIC RESPONSE [None]
  - PLEURAL EFFUSION [None]
  - PNEUMONIA ASPIRATION [None]
  - RESPIRATORY FAILURE [None]
  - SEPTIC SHOCK [None]
  - THROMBOCYTOPENIA [None]
  - VIITH NERVE PARALYSIS [None]
